FAERS Safety Report 5224960-4 (Version None)
Quarter: 2007Q1

REPORT INFORMATION
  Report Type: 
  Country: None (occurrence: None)
  Receive Date: 20070126
  Receipt Date: 20070116
  Transmission Date: 20070707
  Serious: Yes (Death)
  Sender: FDA-Public Use
  Company Number: B0455181A

PATIENT
  Age: 58 Year
  Sex: Male

DRUGS (1)
  1. EPIVIR [Suspect]
     Indication: HEPATITIS B
     Dates: start: 20010801

REACTIONS (4)
  - CONDITION AGGRAVATED [None]
  - DRUG RESISTANCE [None]
  - HEPATIC FAILURE [None]
  - HEPATITIS B [None]
